FAERS Safety Report 19018824 (Version 2)
Quarter: 2022Q2

REPORT INFORMATION
  Report Type: Report from Study
  Country: CN (occurrence: None)
  Receive Date: 20210317
  Receipt Date: 20220427
  Transmission Date: 20220721
  Serious: Yes (Death)
  Sender: FDA-Public Use
  Company Number: CN-ROCHE-2327653

PATIENT
  Age: 62 Year
  Sex: Male
  Weight: 65 kg

DRUGS (19)
  1. PLACEBO [Suspect]
     Active Substance: UNSPECIFIED INGREDIENT
     Indication: Diffuse large B-cell lymphoma
     Dosage: DATE OF MOST RECENT DOSE OF BLINDED POLATUZUMAB VEDOTIN PRIOR TO SAE ONSET 10/MAY/2019
     Route: 042
     Dates: start: 20190419
  2. VINCRISTINE [Suspect]
     Active Substance: VINCRISTINE
     Indication: Diffuse large B-cell lymphoma
     Dosage: MOST RECENT DOSE OF VINCRISTINE (1MG/1ML) RECEIVED ON 10/MAY/2019
     Route: 042
     Dates: start: 20190419
  3. RITUXIMAB [Suspect]
     Active Substance: RITUXIMAB
     Indication: Diffuse large B-cell lymphoma
     Dosage: 375 MILLIGRAMS PER SQUARE METER (MG/M^2) IV, ?MOST RECENT DOSE OF RITUXIMAB (615 MG) RECEIVED ON 10/
     Route: 041
     Dates: start: 20190419
  4. DOXORUBICIN [Suspect]
     Active Substance: DOXORUBICIN
     Indication: Diffuse large B-cell lymphoma
     Dosage: 50 MG/M^2 IV ON DAY 1?MOST RECENT DOSE OF DOXORUBICIN 82 MG RECEIVED ON 10/MAY/2019
     Route: 042
     Dates: start: 20190420
  5. CYCLOPHOSPHAMIDE [Suspect]
     Active Substance: CYCLOPHOSPHAMIDE
     Indication: Diffuse large B-cell lymphoma
     Dosage: 750 MG/M^2 IV,?MOST RECENT DOSE OF CYCLOPHOSPHAMIDE 1230 MG RECEIVED ON 10/MAY/2019
     Route: 042
     Dates: start: 20190420
  6. PREDNISONE [Suspect]
     Active Substance: PREDNISONE
     Indication: Diffuse large B-cell lymphoma
     Dosage: ON DAYS 1-5 OF EVERY 21-DAY CYCLE FOR 6 CYCLES. ?MOST RECENT DOSE OF PREDNISONE 100 MG RECEIVED ON 1
     Route: 042
     Dates: start: 20190419
  7. SODIUM BICARBONATE [Concomitant]
     Active Substance: SODIUM BICARBONATE
     Route: 042
     Dates: start: 20190510, end: 20190512
  8. POTASSIUM CHLORIDE [Concomitant]
     Active Substance: POTASSIUM CHLORIDE
     Route: 048
     Dates: start: 20190424, end: 20190507
  9. RAMOSETRON HYDROCHLORIDE [Concomitant]
     Active Substance: RAMOSETRON HYDROCHLORIDE
     Route: 042
     Dates: start: 20190510, end: 20190512
  10. TROPISETRON [Concomitant]
     Active Substance: TROPISETRON
     Route: 042
     Dates: start: 20190510, end: 20190512
  11. OMEPRAZOLE [Concomitant]
     Active Substance: OMEPRAZOLE
     Route: 042
     Dates: start: 20190510, end: 20190512
  12. SODIUM LACTATE [Concomitant]
     Active Substance: SODIUM LACTATE
     Route: 042
     Dates: start: 20190511, end: 20190512
  13. DIPHENHYDRAMINE [Concomitant]
     Active Substance: DIPHENHYDRAMINE
     Route: 030
     Dates: start: 20190510, end: 20190510
  14. GRANULOCYTE COLONY-STIMULATING FACTOR NOS [Concomitant]
     Active Substance: GRANULOCYTE COLONY-STIMULATING FACTOR NOS
     Route: 058
     Dates: start: 20190512, end: 20190512
  15. GRANULOCYTE COLONY-STIMULATING FACTOR NOS [Concomitant]
     Active Substance: GRANULOCYTE COLONY-STIMULATING FACTOR NOS
     Route: 030
     Dates: start: 20190429, end: 20190501
  16. LIDOCAINE [Concomitant]
     Active Substance: LIDOCAINE
     Route: 061
     Dates: start: 20190510, end: 20190510
  17. LIDOCAINE [Concomitant]
     Active Substance: LIDOCAINE
     Dosage: BONE IN LOCAL ANESTHESIA
     Route: 058
     Dates: start: 20190510, end: 20190510
  18. ACETAMINOPHEN [Concomitant]
     Active Substance: ACETAMINOPHEN
     Route: 048
     Dates: start: 20190510, end: 20190510
  19. GENTAMICIN [Concomitant]
     Active Substance: GENTAMICIN
     Route: 061
     Dates: start: 20190510, end: 20190510

REACTIONS (1)
  - Death [Fatal]

NARRATIVE: CASE EVENT DATE: 20190525
